FAERS Safety Report 12872492 (Version 1)
Quarter: 2016Q4

REPORT INFORMATION
  Report Type: Spontaneous
  Country: US (occurrence: US)
  Receive Date: 20161021
  Receipt Date: 20161021
  Transmission Date: 20170207
  Serious: No
  Sender: FDA-Public Use
  Company Number: US-009507513-1609USA014673

PATIENT
  Age: 23 Year
  Sex: Female
  Weight: 88.44 kg

DRUGS (1)
  1. NEXPLANON [Suspect]
     Active Substance: ETONOGESTREL
     Indication: CONTRACEPTION
     Dosage: 1 IMPLANT / 3 YEARS
     Route: 059
     Dates: start: 20131007, end: 20160929

REACTIONS (3)
  - Vaginal haemorrhage [Unknown]
  - Device breakage [Recovered/Resolved]
  - Difficulty removing drug implant [Recovered/Resolved]

NARRATIVE: CASE EVENT DATE: 20160929
